FAERS Safety Report 8972113 (Version 1)
Quarter: 2012Q4

REPORT INFORMATION
  Report Type: 
  Country: HR (occurrence: HR)
  Receive Date: 20121218
  Receipt Date: 20121218
  Transmission Date: 20130627
  Serious: Yes (Hospitalization)
  Sender: FDA-Public Use
  Company Number: HR-TEVA-375685ISR

PATIENT
  Age: 4 Year
  Sex: Male

DRUGS (1)
  1. ISOSORBIDE DINITRATE [Suspect]
     Dosage: 20 Milligram Daily;
     Route: 048
     Dates: start: 20120603

REACTIONS (3)
  - Toxicity to various agents [Recovered/Resolved]
  - Accidental poisoning [Recovered/Resolved]
  - Hypotension [Recovered/Resolved]
